FAERS Safety Report 6659847-3 (Version None)
Quarter: 2010Q1

REPORT INFORMATION
  Report Type: 
  Country: None (occurrence: None)
  Receive Date: 20100330
  Receipt Date: 20100326
  Transmission Date: 20100710
  Serious: Yes (Death)
  Sender: FDA-Public Use
  Company Number: US-GILEAD-2010-0028160

PATIENT
  Sex: Female
  Weight: 48.124 kg

DRUGS (15)
  1. LETAIRIS [Suspect]
     Indication: PULMONARY ARTERIAL HYPERTENSION
     Route: 048
     Dates: start: 20090218
  2. COUMADIN [Concomitant]
  3. LASIX [Concomitant]
  4. CLONIDINE [Concomitant]
  5. METOPROLOL [Concomitant]
  6. ALPHAGAN [Concomitant]
  7. TRAVATAN [Concomitant]
  8. ARANESP [Concomitant]
  9. SPIRIVA [Concomitant]
  10. BENADRYL [Concomitant]
  11. BENTYL [Concomitant]
  12. HYDREA [Concomitant]
  13. ZOLOFT [Concomitant]
  14. PREVACID [Concomitant]
  15. POTASSIUM CHLORIDE [Concomitant]

REACTIONS (1)
  - DEATH [None]
